FAERS Safety Report 4375087-5 (Version None)
Quarter: 2004Q2

REPORT INFORMATION
  Report Type: 
  Country: None (occurrence: None)
  Receive Date: 20040603
  Receipt Date: 20040521
  Transmission Date: 20050107
  Serious: Yes (Death, Hospitalization)
  Sender: FDA-Public Use
  Company Number: DE-JNJFOC-20031001663

PATIENT
  Age: 70 Year
  Sex: Male

DRUGS (1)
  1. SEMPERA (ITRACONAZOLE) CAPSULES [Suspect]
     Indication: ONYCHOMYCOSIS
     Dosage: 200 MG, 2 IN 1 DAY, ORAL
     Route: 048
     Dates: start: 20030902, end: 20030909

REACTIONS (8)
  - ABDOMINAL DISCOMFORT [None]
  - ANOREXIA [None]
  - CONSTIPATION [None]
  - GASTRIC SARCOMA [None]
  - NAUSEA [None]
  - OVERDOSE [None]
  - WEIGHT DECREASED [None]
  - WHITE BLOOD CELL COUNT INCREASED [None]
